FAERS Safety Report 21204215 (Version 2)
Quarter: 2022Q3

REPORT INFORMATION
  Report Type: Report from Study
  Country: US (occurrence: US)
  Receive Date: 20220812
  Receipt Date: 20220929
  Transmission Date: 20221027
  Serious: No
  Sender: FDA-Public Use
  Company Number: US-NOVARTISTESTPH-NVSC2022US181792

PATIENT
  Sex: Male

DRUGS (1)
  1. KESIMPTA [Suspect]
     Active Substance: OFATUMUMAB
     Indication: Product used for unknown indication
     Dosage: UNK
     Route: 065

REACTIONS (10)
  - Tremor [Not Recovered/Not Resolved]
  - Feeling abnormal [Unknown]
  - Emotional distress [Unknown]
  - Fatigue [Not Recovered/Not Resolved]
  - Memory impairment [Unknown]
  - Piloerection [Unknown]
  - Pruritus [Unknown]
  - Chills [Not Recovered/Not Resolved]
  - Dizziness [Unknown]
  - Device malfunction [Unknown]
